FAERS Safety Report 9479434 (Version 1)
Quarter: 2013Q3

REPORT INFORMATION
  Report Type: Spontaneous
  Country: US (occurrence: US)
  Receive Date: 20130827
  Receipt Date: 20130827
  Transmission Date: 20140515
  Serious: No
  Sender: FDA-Public Use
  Company Number: US-PFIZER INC-2013246785

PATIENT
  Sex: Female

DRUGS (2)
  1. LYRICA [Suspect]
     Indication: NECK SURGERY
     Dosage: UNK, 3X/DAY
  2. LYRICA [Suspect]
     Indication: SPINAL CORD DISORDER

REACTIONS (2)
  - Off label use [Unknown]
  - Initial insomnia [Unknown]
